FAERS Safety Report 8561954-5 (Version None)
Quarter: 2012Q3

REPORT INFORMATION
  Report Type: 
  Country: None (occurrence: None)
  Receive Date: 20120802
  Receipt Date: 20120713
  Transmission Date: 20120928
  Serious: No
  Sender: FDA-Public Use
  Company Number: US-ASTRAZENECA-2012SE48879

PATIENT
  Age: 24 Year
  Sex: Female
  Weight: 79.4 kg

DRUGS (2)
  1. AMBIEN [Concomitant]
     Indication: SLEEP DISORDER
  2. SEROQUEL XR [Suspect]
     Indication: MAJOR DEPRESSION
     Route: 048
     Dates: start: 20111001

REACTIONS (6)
  - AGITATION [None]
  - INSOMNIA [None]
  - IRRITABILITY [None]
  - DRUG DOSE OMISSION [None]
  - FEELING ABNORMAL [None]
  - MOOD SWINGS [None]
